FAERS Safety Report 24622067 (Version 2)
Quarter: 2025Q1

REPORT INFORMATION
  Report Type: Spontaneous
  Country: US (occurrence: US)
  Receive Date: 20241114
  Receipt Date: 20250107
  Transmission Date: 20250409
  Serious: No
  Sender: BAUSCH AND LOMB
  Company Number: US-BAUSCHBL-2024BNL036960

PATIENT
  Sex: Female

DRUGS (5)
  1. MIEBO [Suspect]
     Active Substance: PERFLUOROHEXYLOCTANE
     Indication: Dry eye
     Dosage: SHE WAS TRYING TO USE IT 4 TIMES A DAY AS DIRECTED
     Route: 047
  2. MIEBO [Suspect]
     Active Substance: PERFLUOROHEXYLOCTANE
     Dosage: SOMETIMES ONLY USED IT 3 TIMES A DAY
     Route: 047
  3. LUMIFY [Suspect]
     Active Substance: BRIMONIDINE TARTRATE
     Indication: Ocular hyperaemia
     Dosage: ONCE A DAY OR SOMETIMES TWICE A DAY BECAUSE PATIENT DRY EYES CAUSE RED EYES
     Route: 047
  4. LUMIFY [Suspect]
     Active Substance: BRIMONIDINE TARTRATE
     Indication: Product use in unapproved indication
     Dosage: ONCE A DAY OR SOMETIMES TWICE A DAY BECAUSE PATIENT DRY EYES CAUSE RED EYES
     Route: 047
  5. RETAINE MGD [Concomitant]
     Active Substance: LIGHT MINERAL OIL\MINERAL OIL
     Indication: Product used for unknown indication

REACTIONS (7)
  - Ocular hyperaemia [Unknown]
  - Dry eye [Unknown]
  - Product delivery mechanism issue [Unknown]
  - Inappropriate schedule of product administration [Unknown]
  - Circumstance or information capable of leading to medication error [Unknown]
  - Product use in unapproved indication [Unknown]
  - Product knowledge deficit [Unknown]
